FAERS Safety Report 9105309 (Version 2)
Quarter: 2013Q1

REPORT INFORMATION
  Report Type: Spontaneous
  Country: SE (occurrence: SE)
  Receive Date: 20130220
  Receipt Date: 20130327
  Transmission Date: 20140127
  Serious: Yes (Other)
  Sender: FDA-Public Use
  Company Number: SE-AMGEN-SWESP2013011662

PATIENT
  Age: 81 Year
  Sex: Female

DRUGS (4)
  1. ENBREL [Suspect]
     Indication: RHEUMATOID ARTHRITIS
     Dosage: UNK. ONCE WEEKLY
     Dates: start: 20120405
  2. ARAVA [Concomitant]
     Dosage: 10 MG, EVERY OTHER DAY
  3. ARAVA [Concomitant]
     Dosage: 20 MG, EVERY OTHER DAY
  4. PREDNISOLON                        /00016201/ [Concomitant]
     Dosage: 10 MG, 1X/DAY

REACTIONS (2)
  - Ileus [Recovered/Resolved]
  - Pyrexia [Recovered/Resolved]
